FAERS Safety Report 5689326-1 (Version None)
Quarter: 2008Q1

REPORT INFORMATION
  Report Type: 
  Country: None (occurrence: None)
  Receive Date: 20080331
  Receipt Date: 20080319
  Transmission Date: 20080703
  Serious: Yes (Other)
  Sender: FDA-Public Use
  Company Number: BR-PFIZER INC-2008026260

PATIENT
  Sex: Female
  Weight: 62 kg

DRUGS (3)
  1. CHAMPIX [Suspect]
     Indication: TOBACCO ABUSE
     Route: 048
  2. HYGROTON [Concomitant]
  3. HOMEOPATHIC PREPARATION [Concomitant]

REACTIONS (5)
  - CARDIOMEGALY [None]
  - EYE PAIN [None]
  - HEAD DISCOMFORT [None]
  - HEPATOMEGALY [None]
  - RESPIRATORY RATE DECREASED [None]
